FAERS Safety Report 5390720-7 (Version None)
Quarter: 2007Q3

REPORT INFORMATION
  Report Type: 
  Country: None (occurrence: None)
  Receive Date: 20070716
  Receipt Date: 20061107
  Transmission Date: 20080115
  Serious: Yes (Hospitalization, Other)
  Sender: FDA-Public Use
  Company Number: MPS1-10526

PATIENT
  Age: 24 Month
  Sex: Male
  Weight: 18 kg

DRUGS (1)
  1. ALDURAZYME [Suspect]
     Indication: MUCOPOLYSACCHARIDOSIS I
     Dosage: 100 U/KG QWK; IV
     Route: 042
     Dates: start: 20050101, end: 20060801

REACTIONS (6)
  - BONE MARROW TRANSPLANT [None]
  - CARDIAC VALVE DISEASE [None]
  - CONDITION AGGRAVATED [None]
  - DEAFNESS [None]
  - HYDROCEPHALUS [None]
  - KYPHOSCOLIOSIS [None]
